FAERS Safety Report 18361842 (Version 3)
Quarter: 2020Q4

REPORT INFORMATION
  Report Type: Spontaneous
  Country: JP (occurrence: JP)
  Receive Date: 20201008
  Receipt Date: 20201124
  Transmission Date: 20210114
  Serious: Yes (Death, Other)
  Sender: FDA-Public Use
  Company Number: JP-SEATTLE GENETICS-2020SGN04487

PATIENT
  Age: 8 Decade
  Sex: Male

DRUGS (1)
  1. ADCETRIS [Suspect]
     Active Substance: BRENTUXIMAB VEDOTIN
     Indication: PERIPHERAL T-CELL LYMPHOMA UNSPECIFIED
     Dosage: 1.8 MILLIGRAM/KILOGRAM
     Route: 041
     Dates: start: 20190809

REACTIONS (1)
  - Choking [Fatal]

NARRATIVE: CASE EVENT DATE: 201909
